FAERS Safety Report 8305945-8 (Version None)
Quarter: 2012Q1

REPORT INFORMATION
  Report Type: 
  Country: None (occurrence: None)
  Receive Date: 20120327
  Receipt Date: 20100122
  Transmission Date: 20120608
  Serious: Yes (Other)
  Sender: FDA-Public Use
  Company Number: PHEH2009US15554

PATIENT
  Age: 54 Year
  Sex: Female

DRUGS (6)
  1. ASPIRIN [Concomitant]
  2. GLEEVEC [Suspect]
     Indication: CHRONIC MYELOID LEUKAEMIA
     Dates: end: 20090601
  3. LUNESTA [Concomitant]
  4. OSCAL (CALCIUM CARBONATE) [Concomitant]
  5. LEXAPRO [Concomitant]
  6. LIPITOR [Concomitant]

REACTIONS (3)
  - DRUG RESISTANCE [None]
  - NEOPLASM MALIGNANT [None]
  - RASH FOLLICULAR [None]
